FAERS Safety Report 4461639-0 (Version None)
Quarter: 2004Q3

REPORT INFORMATION
  Report Type: 
  Country: None (occurrence: None)
  Receive Date: 20040924
  Receipt Date: 20040924
  Transmission Date: 20050211
  Serious: No
  Sender: FDA-Public Use
  Company Number: None

PATIENT
  Sex: Female
  Weight: 53.5244 kg

DRUGS (1)
  1. ATENOLOL [Suspect]
     Dosage: 50 MG TABLET 1 DAILY ORAL
     Route: 048
     Dates: start: 20030927, end: 20040225

REACTIONS (1)
  - STEVENS-JOHNSON SYNDROME [None]
